FAERS Safety Report 23337357 (Version 2)
Quarter: 2025Q2

REPORT INFORMATION
  Report Type: Spontaneous
  Country: PT (occurrence: PT)
  Receive Date: 20231226
  Receipt Date: 20250424
  Transmission Date: 20250717
  Serious: Yes (Death, Other)
  Sender: SANOFI AVENTIS
  Company Number: PT-OPELLA-2023OHG019553

PATIENT
  Age: 61 Year

DRUGS (78)
  1. XYZAL [Suspect]
     Active Substance: LEVOCETIRIZINE DIHYDROCHLORIDE
     Indication: Product used for unknown indication
  2. ASPIRIN [Suspect]
     Active Substance: ASPIRIN
  3. TAMSULOSIN HYDROCHLORIDE [Suspect]
     Active Substance: TAMSULOSIN HYDROCHLORIDE
  4. ACETAMINOPHEN [Suspect]
     Active Substance: ACETAMINOPHEN
  5. DONEPEZIL HYDROCHLORIDE [Suspect]
     Active Substance: DONEPEZIL HYDROCHLORIDE
  6. ENOXAPARIN SODIUM [Suspect]
     Active Substance: ENOXAPARIN SODIUM
  7. BISOPROLOL FUMARATE [Suspect]
     Active Substance: BISOPROLOL FUMARATE
  8. FLUOXETINE HYDROCHLORIDE [Suspect]
     Active Substance: FLUOXETINE HYDROCHLORIDE
  9. DILTIAZEM HYDROCHLORIDE [Suspect]
     Active Substance: DILTIAZEM HYDROCHLORIDE
  10. PREGABALIN [Suspect]
     Active Substance: PREGABALIN
  11. PREGABALIN [Suspect]
     Active Substance: PREGABALIN
  12. TRAMADOL HYDROCHLORIDE [Suspect]
     Active Substance: TRAMADOL HYDROCHLORIDE
  13. ESOMEPRAZOLE [Suspect]
     Active Substance: ESOMEPRAZOLE
  14. CODEINE [Suspect]
     Active Substance: CODEINE
  15. IMATINIB [Suspect]
     Active Substance: IMATINIB
  16. PRAVASTATIN SODIUM [Suspect]
     Active Substance: PRAVASTATIN SODIUM
  17. ACECLOFENAC [Suspect]
     Active Substance: ACECLOFENAC
  18. VENLAFAXINE HYDROCHLORIDE [Suspect]
     Active Substance: VENLAFAXINE HYDROCHLORIDE
  19. DOMPERIDONE [Suspect]
     Active Substance: DOMPERIDONE
  20. GINKGO [Suspect]
     Active Substance: GINKGO
  21. GINKGO [Suspect]
     Active Substance: GINKGO
  22. MYCOPHENOLATE MOFETIL [Suspect]
     Active Substance: MYCOPHENOLATE MOFETIL
  23. IBANDRONIC ACID [Suspect]
     Active Substance: IBANDRONIC ACID
  24. HUMAN IMMUNOGLOBULIN G [Suspect]
     Active Substance: HUMAN IMMUNOGLOBULIN G
  25. TELMISARTAN [Suspect]
     Active Substance: TELMISARTAN
  26. ALENDRONIC ACID [Suspect]
     Active Substance: ALENDRONIC ACID
  27. ATORVASTATIN CALCIUM [Suspect]
     Active Substance: ATORVASTATIN CALCIUM
  28. ADALIMUMAB [Suspect]
     Active Substance: ADALIMUMAB
  29. ETANERCEPT [Suspect]
     Active Substance: ETANERCEPT
  30. ZOLEDRONIC ACID [Suspect]
     Active Substance: ZOLEDRONIC ACID
  31. ALISKIREN [Suspect]
     Active Substance: ALISKIREN
  32. SERTRALINE HYDROCHLORIDE [Suspect]
     Active Substance: SERTRALINE HYDROCHLORIDE
  33. NITROGLYCERIN [Suspect]
     Active Substance: NITROGLYCERIN
  34. DUTASTERIDE [Suspect]
     Active Substance: DUTASTERIDE
  35. SODIUM PICOSULFATE [Suspect]
     Active Substance: SODIUM PICOSULFATE
  36. ESCHERICHIA COLI [Suspect]
     Active Substance: ESCHERICHIA COLI
  37. CHOLECALCIFEROL [Suspect]
     Active Substance: CHOLECALCIFEROL
  38. CHOLECALCIFEROL [Suspect]
     Active Substance: CHOLECALCIFEROL
  39. SIMVASTATIN [Suspect]
     Active Substance: SIMVASTATIN
  40. VERAPAMIL HYDROCHLORIDE [Suspect]
     Active Substance: VERAPAMIL HYDROCHLORIDE
  41. EZETIMIBE [Suspect]
     Active Substance: EZETIMIBE
  42. ESCITALOPRAM OXALATE [Suspect]
     Active Substance: ESCITALOPRAM OXALATE
  43. FENOFIBRATE [Suspect]
     Active Substance: FENOFIBRATE
  44. IODINE [Suspect]
     Active Substance: IODINE
  45. HYDROMORPHONE [Suspect]
     Active Substance: HYDROMORPHONE
  46. NITROGLYCERIN [Suspect]
     Active Substance: NITROGLYCERIN
  47. PROPRANOLOL [Suspect]
     Active Substance: PROPRANOLOL HYDROCHLORIDE
  48. INDOMETHACIN SODIUM [Suspect]
     Active Substance: INDOMETHACIN SODIUM
  49. RIBAVIRIN [Suspect]
     Active Substance: RIBAVIRIN
  50. LETROZOLE [Suspect]
     Active Substance: LETROZOLE
  51. CILAZAPRIL ANHYDROUS [Suspect]
     Active Substance: CILAZAPRIL ANHYDROUS
  52. DOCETAXEL [Suspect]
     Active Substance: DOCETAXEL
  53. EXEMESTANE [Suspect]
     Active Substance: EXEMESTANE
  54. LEDIPASVIR [Suspect]
     Active Substance: LEDIPASVIR
  55. PRAVASTATIN [Suspect]
     Active Substance: PRAVASTATIN
  56. BRINZOLAMIDE [Suspect]
     Active Substance: BRINZOLAMIDE
  57. BRINZOLAMIDE [Suspect]
     Active Substance: BRINZOLAMIDE
  58. VORTIOXETINE [Suspect]
     Active Substance: VORTIOXETINE
  59. ANASTROZOLE [Suspect]
     Active Substance: ANASTROZOLE
  60. PITAVASTATIN [Suspect]
     Active Substance: PITAVASTATIN
  61. HYDROMORPHONE HYDROCHLORIDE [Suspect]
     Active Substance: HYDROMORPHONE HYDROCHLORIDE
  62. MIRTAZAPINE [Suspect]
     Active Substance: MIRTAZAPINE
  63. GLUCOSAMINE [Suspect]
     Active Substance: GLUCOSAMINE
  64. POTASSIUM IODIDE [Suspect]
     Active Substance: POTASSIUM IODIDE
  65. PENTAZOCINE [Suspect]
     Active Substance: PENTAZOCINE
  66. CELECOXIB [Suspect]
     Active Substance: CELECOXIB
  67. FLUVASTATIN [Suspect]
     Active Substance: FLUVASTATIN SODIUM
  68. SOFOSBUVIR [Suspect]
     Active Substance: SOFOSBUVIR
  69. NIMESULIDE [Suspect]
     Active Substance: NIMESULIDE
  70. PENTOXIFYLLINE [Suspect]
     Active Substance: PENTOXIFYLLINE
  71. NILOTINIB [Suspect]
     Active Substance: NILOTINIB
  72. NORFLOXACIN [Suspect]
     Active Substance: NORFLOXACIN
  73. MYCOPHENOLIC ACID [Suspect]
     Active Substance: MYCOPHENOLIC ACID
  74. HYDROCHLOROTHIAZIDE [Suspect]
     Active Substance: HYDROCHLOROTHIAZIDE
  75. TOCILIZUMAB [Suspect]
     Active Substance: TOCILIZUMAB
  76. BUPRENORPHINE [Suspect]
     Active Substance: BUPRENORPHINE
  77. BUPRENORPHINE [Suspect]
     Active Substance: BUPRENORPHINE
  78. AGOMELATINE [Suspect]
     Active Substance: AGOMELATINE

REACTIONS (46)
  - Coma [Fatal]
  - Sepsis [Fatal]
  - Tinnitus [Fatal]
  - Drug interaction [Fatal]
  - Asthenia [Fatal]
  - Pruritus [Fatal]
  - Ocular discomfort [Fatal]
  - Fatigue [Fatal]
  - Photophobia [Fatal]
  - Altered state of consciousness [Fatal]
  - Amaurosis fugax [Fatal]
  - Dizziness [Fatal]
  - Urinary tract disorder [Fatal]
  - Abdominal pain [Fatal]
  - Blood pressure increased [Fatal]
  - Generalised oedema [Fatal]
  - Fall [Fatal]
  - Haematuria [Fatal]
  - Malaise [Fatal]
  - Pyrexia [Fatal]
  - Somnolence [Fatal]
  - Headache [Fatal]
  - Cardio-respiratory arrest [Fatal]
  - Somnolence [Fatal]
  - Insomnia [Fatal]
  - Haemorrhagic stroke [Fatal]
  - Head discomfort [Fatal]
  - Chills [Fatal]
  - Dyspnoea [Fatal]
  - Diarrhoea [Fatal]
  - Abdominal pain upper [Fatal]
  - Myalgia [Fatal]
  - Ascites [Fatal]
  - Presyncope [Fatal]
  - Arthralgia [Fatal]
  - Syncope [Fatal]
  - Haematemesis [Fatal]
  - Blindness [Fatal]
  - Vision blurred [Fatal]
  - Nausea [Fatal]
  - Decreased appetite [Fatal]
  - Cough [Fatal]
  - Vomiting [Fatal]
  - Diplopia [Fatal]
  - Tachycardia [Fatal]
  - Eye pain [Unknown]
